FAERS Safety Report 7479758-3 (Version None)
Quarter: 2011Q2

REPORT INFORMATION
  Report Type: 
  Country: None (occurrence: None)
  Receive Date: 20110513
  Receipt Date: 20110512
  Transmission Date: 20111010
  Serious: Yes (Death, Hospitalization, Other)
  Sender: FDA-Public Use
  Company Number: MY-ABBOTT-07R-008-0364834-00

PATIENT

DRUGS (1)
  1. SURVANTA [Suspect]
     Indication: PRODUCT USED FOR UNKNOWN INDICATION
     Dosage: OTHER = ML/KG
     Route: 007

REACTIONS (3)
  - NEONATAL ASPIRATION [None]
  - PULMONARY HYPERTENSION [None]
  - HYPOXIA [None]
